FAERS Safety Report 7769424-9 (Version None)
Quarter: 2011Q3

REPORT INFORMATION
  Report Type: 
  Country: None (occurrence: None)
  Receive Date: 20110922
  Receipt Date: 20110106
  Transmission Date: 20111222
  Serious: No
  Sender: FDA-Public Use
  Company Number: US-ASTRAZENECA-2011SE00904

PATIENT
  Age: 80 Year
  Sex: Female
  Weight: 68 kg

DRUGS (4)
  1. PAXIL [Concomitant]
     Indication: DEPRESSION
     Dates: start: 20000101, end: 20101201
  2. ARICEPT [Concomitant]
     Dates: start: 20101201
  3. UNKNOWN BLOOD PRESSURE PILL [Concomitant]
  4. SEROQUEL [Suspect]
     Indication: DEMENTIA
     Dosage: THREE TIMES A DAY
     Route: 048
     Dates: start: 20101201

REACTIONS (8)
  - ANTISOCIAL BEHAVIOUR [None]
  - CRYING [None]
  - ASTHENIA [None]
  - INSOMNIA [None]
  - WALKING AID USER [None]
  - ABNORMAL DREAMS [None]
  - PARAESTHESIA [None]
  - AGITATION [None]
